FAERS Safety Report 11445719 (Version 1)
Quarter: 2015Q3

REPORT INFORMATION
  Report Type: Spontaneous
  Country: US (occurrence: US)
  Receive Date: 20150902
  Receipt Date: 20150902
  Transmission Date: 20151125
  Serious: Yes (Hospitalization, Other)
  Sender: FDA-Public Use
  Company Number: US-PFIZER INC-2015288111

PATIENT
  Age: 18 Month
  Sex: Male

DRUGS (2)
  1. LORABID [Suspect]
     Active Substance: LORACARBEF
     Indication: CONJUNCTIVITIS
  2. LORABID [Suspect]
     Active Substance: LORACARBEF
     Indication: OTITIS MEDIA
     Dosage: UNK

REACTIONS (1)
  - Tubulointerstitial nephritis [Not Recovered/Not Resolved]
